FAERS Safety Report 16705152 (Version 1)
Quarter: 2019Q3

REPORT INFORMATION
  Report Type: Spontaneous
  Country: US (occurrence: US)
  Receive Date: 20190815
  Receipt Date: 20190815
  Transmission Date: 20191004
  Serious: No
  Sender: FDA-Public Use
  Company Number: US-AMGEN-USASP2019127865

PATIENT
  Sex: Male

DRUGS (2)
  1. NPLATE [Suspect]
     Active Substance: ROMIPLOSTIM
     Indication: IMMUNE THROMBOCYTOPENIC PURPURA
     Dosage: UNK
     Route: 065
     Dates: start: 2015
  2. NPLATE [Suspect]
     Active Substance: ROMIPLOSTIM
     Dosage: 186 MICROGRAM, QWK
     Route: 065
     Dates: start: 2015

REACTIONS (3)
  - Off label use [Unknown]
  - Platelet count abnormal [Unknown]
  - Headache [Unknown]

NARRATIVE: CASE EVENT DATE: 20190805
